FAERS Safety Report 6056579-X (Version None)
Quarter: 2009Q1

REPORT INFORMATION
  Report Type: 
  Country: None (occurrence: None)
  Receive Date: 20090126
  Receipt Date: 20090126
  Transmission Date: 20090719
  Serious: Yes (Other)
  Sender: FDA-Public Use
  Company Number: None

PATIENT
  Sex: Male
  Weight: 83.0083 kg

DRUGS (1)
  1. GABAPENTIN [Suspect]
     Indication: COMPLEX PARTIAL SEIZURES
     Dosage: 600MG TID PO
     Route: 048
     Dates: start: 20050226, end: 20050413

REACTIONS (4)
  - CONVULSION [None]
  - GASTRIC DISORDER [None]
  - HEADACHE [None]
  - THERAPEUTIC RESPONSE UNEXPECTED WITH DRUG SUBSTITUTION [None]
